FAERS Safety Report 20491407 (Version 1)
Quarter: 2022Q1

REPORT INFORMATION
  Report Type: Spontaneous
  Country: US (occurrence: US)
  Receive Date: 20220218
  Receipt Date: 20220218
  Transmission Date: 20220423
  Serious: Yes (Disabling, Other)
  Sender: FDA-Public Use
  Company Number: US-BIOGEN-2022BI01086497

PATIENT
  Sex: Female

DRUGS (1)
  1. VUMERITY [Suspect]
     Active Substance: DIROXIMEL FUMARATE
     Indication: Multiple sclerosis
     Dosage: MAINTENANCE DOSE
     Route: 048
     Dates: start: 20200123

REACTIONS (4)
  - Progressive multifocal leukoencephalopathy [Unknown]
  - Disability [Unknown]
  - Bradyphrenia [Unknown]
  - Clumsiness [Unknown]
